FAERS Safety Report 8455909-9 (Version None)
Quarter: 2012Q2

REPORT INFORMATION
  Report Type: 
  Country: None (occurrence: None)
  Receive Date: 20120621
  Receipt Date: 20120611
  Transmission Date: 20120825
  Serious: Yes (Life-Threatening, Other)
  Sender: FDA-Public Use
  Company Number: JP-ROCHE-1062241

PATIENT
  Sex: Male

DRUGS (31)
  1. HEPARIN SODIUM [Concomitant]
     Dates: start: 20111227, end: 20120206
  2. BISOPROLOL FUMARATE [Concomitant]
     Dates: start: 20111228
  3. LAXOBERON [Concomitant]
     Route: 048
     Dates: start: 20111229, end: 20120108
  4. VANCOMYCIN [Concomitant]
     Route: 042
     Dates: start: 20120106, end: 20120123
  5. AMPICILLIN SODIUM/SULBACTAM SODIUM [Suspect]
     Indication: PNEUMONIA ASPIRATION
     Dosage: BRAND NAME: PICILLIBACTA
     Dates: end: 20120106
  6. HANGEKOBOKUTO [Suspect]
     Indication: MENTAL IMPAIRMENT
     Route: 048
     Dates: start: 20111229, end: 20120108
  7. LANSOPRAZOLE [Concomitant]
     Dates: start: 20111227, end: 20111227
  8. AMLODIPINE [Concomitant]
     Route: 048
     Dates: start: 20111229, end: 20120102
  9. GASMOTIN [Concomitant]
     Route: 048
     Dates: start: 20120105
  10. VANCOMYCIN [Concomitant]
     Route: 042
     Dates: start: 20120127, end: 20120130
  11. ENALAPRIL MALEATE [Concomitant]
     Route: 048
     Dates: start: 20111228, end: 20120206
  12. WARFARIN SODIUM [Concomitant]
     Route: 048
     Dates: start: 20120103, end: 20120126
  13. VANCOMYCIN [Concomitant]
     Route: 042
     Dates: start: 20120124, end: 20120125
  14. ASPIRIN [Suspect]
     Indication: EMBOLIC STROKE
     Route: 048
     Dates: start: 20111225, end: 20120104
  15. SYMMETREL [Suspect]
     Indication: MENTAL IMPAIRMENT
     Route: 048
     Dates: start: 20111229, end: 20120106
  16. GLYCEOL [Concomitant]
     Dates: start: 20111225, end: 20120106
  17. WARFARIN POTASSIUM [Concomitant]
     Route: 048
     Dates: start: 20120105
  18. AMLODIPINE [Concomitant]
     Route: 048
     Dates: start: 20120127
  19. RADICUT [Suspect]
     Indication: EMBOLIC STROKE
     Dates: start: 20111225, end: 20120104
  20. NICARDIPINE HCL [Concomitant]
     Dates: start: 20111225, end: 20120103
  21. LANSOPRAZOLE [Concomitant]
     Dates: start: 20111228
  22. CEFAZOLIN SODIUM [Concomitant]
     Dates: start: 20111227
  23. AMLODIPINE [Concomitant]
     Route: 048
     Dates: start: 20111228, end: 20111228
  24. AMLODIPINE [Concomitant]
     Route: 048
     Dates: start: 20120103, end: 20120126
  25. WARFARIN SODIUM [Concomitant]
     Route: 048
     Dates: start: 20120213, end: 20120219
  26. WARFARIN SODIUM [Concomitant]
     Route: 048
     Dates: start: 20120220
  27. GLYCEOL [Concomitant]
     Dates: start: 20111225, end: 20120106
  28. WARFARIN SODIUM [Concomitant]
     Route: 048
     Dates: start: 20120105, end: 20120201
  29. WARFARIN SODIUM [Concomitant]
     Route: 048
     Dates: start: 20120202, end: 20120210
  30. ACTIVASE [Suspect]
     Indication: EMBOLIC STROKE
     Route: 042
     Dates: start: 20111225, end: 20111225
  31. VERAPAMIL HCL [Concomitant]
     Route: 048
     Dates: start: 20120107

REACTIONS (3)
  - HAEMORRHAGIC CEREBRAL INFARCTION [None]
  - PNEUMONIA ASPIRATION [None]
  - HEPATIC FUNCTION ABNORMAL [None]
